FAERS Safety Report 9790157 (Version 1)
Quarter: 2013Q4

REPORT INFORMATION
  Report Type: Spontaneous
  Country: DE (occurrence: DE)
  Receive Date: 20131231
  Receipt Date: 20131231
  Transmission Date: 20140711
  Serious: Yes (Hospitalization)
  Sender: FDA-Public Use
  Company Number: DE-ABBVIE-13P-062-1182925-00

PATIENT
  Age: 37 Year
  Sex: Male

DRUGS (1)
  1. HUMIRA [Suspect]
     Indication: CROHN^S DISEASE
     Route: 058
     Dates: start: 20130617

REACTIONS (4)
  - Concussion [Recovering/Resolving]
  - Phlebitis [Recovering/Resolving]
  - Nasopharyngitis [Recovering/Resolving]
  - Road traffic accident [Unknown]
